FAERS Safety Report 6997413-0 (Version None)
Quarter: 2010Q3

REPORT INFORMATION
  Report Type: 
  Country: None (occurrence: None)
  Receive Date: 20100918
  Receipt Date: 20091007
  Transmission Date: 20110219
  Serious: No
  Sender: FDA-Public Use
  Company Number: US-WYE-H11482409

PATIENT
  Sex: Female
  Weight: 72.64 kg

DRUGS (4)
  1. EFFEXOR XR [Suspect]
     Indication: DEPRESSION
     Route: 048
     Dates: start: 20000101, end: 20090601
  2. EFFEXOR XR [Suspect]
     Route: 048
     Dates: start: 20090601, end: 20090601
  3. EFFEXOR XR [Suspect]
     Route: 048
     Dates: start: 20090601, end: 20090101
  4. EFFEXOR XR [Suspect]
     Dosage: ^TRIED TO TAPER OFF AGAIN^
     Route: 048
     Dates: start: 20090101

REACTIONS (5)
  - ANXIETY [None]
  - DIZZINESS [None]
  - DRUG WITHDRAWAL SYNDROME [None]
  - MALAISE [None]
  - NAUSEA [None]
